FAERS Safety Report 25660155 (Version 1)
Quarter: 2025Q3

REPORT INFORMATION
  Report Type: Report from Study
  Country: EG (occurrence: EG)
  Receive Date: 20250808
  Receipt Date: 20250808
  Transmission Date: 20251021
  Serious: Yes (Life-Threatening, Disabling, Other)
  Sender: NOVARTIS
  Company Number: EG-002147023-NVSC2025EG121277

PATIENT
  Age: 42 Year
  Sex: Female
  Weight: 90 kg

DRUGS (4)
  1. KISQALI [Suspect]
     Active Substance: RIBOCICLIB SUCCINATE
     Indication: Breast cancer metastatic
     Dosage: 3 DOSAGE FORM, QD (FOR 21 DAYS AND 1 WEEK OFF)
     Route: 048
     Dates: start: 202501, end: 202506
  2. KISQALI [Suspect]
     Active Substance: RIBOCICLIB SUCCINATE
     Dosage: 2 DOSAGE FORM, QD (FOR 21 DAYS AND 1 WEEK OFF)
     Route: 048
     Dates: start: 202506, end: 202507
  3. GOSERELIN [Concomitant]
     Active Substance: GOSERELIN
     Indication: Breast cancer metastatic
     Dosage: 1 DOSAGE FORM (INJECTION), Q3MO (STRENGTH:10.3 MG) (SOL FOR INJ) (STARTED 3 OR 4 YEARS AGO) (END DAT
     Route: 058
  4. FASLODEX [Concomitant]
     Active Substance: FULVESTRANT
     Indication: Breast cancer metastatic
     Dosage: 2 DOSAGE FORM (INJECTION), 28D (SOL FOR INJ) (END DATE: JUL 2025)
     Route: 030
     Dates: start: 202501

REACTIONS (15)
  - Dyspnoea [Recovered/Resolved]
  - Muscle spasms [Recovered/Resolved]
  - Metastases to skin [Recovering/Resolving]
  - Abdominal pain [Recovered/Resolved]
  - Hepatic enzyme increased [Not Recovered/Not Resolved]
  - Mobility decreased [Not Recovered/Not Resolved]
  - Delirium [Not Recovered/Not Resolved]
  - Metastases to liver [Not Recovered/Not Resolved]
  - Drug ineffective [Not Recovered/Not Resolved]
  - Arthralgia [Recovering/Resolving]
  - Heart rate increased [Recovered/Resolved]
  - Lethargy [Not Recovered/Not Resolved]
  - Hypotension [Recovering/Resolving]
  - Dizziness [Recovering/Resolving]
  - Hypoglycaemia [Recovering/Resolving]

NARRATIVE: CASE EVENT DATE: 20250101
